FAERS Safety Report 12628605 (Version 1)
Quarter: 2016Q3

REPORT INFORMATION
  Report Type: Spontaneous
  Country: US (occurrence: None)
  Receive Date: 20160805
  Receipt Date: 20160805
  Transmission Date: 20161109
  Serious: Yes (Hospitalization)
  Sender: FDA-Public Use
  Company Number: None

PATIENT
  Age: 39 Year
  Sex: Female
  Weight: 79.38 kg

DRUGS (1)
  1. HCG TRIUMPH [Suspect]
     Active Substance: HOMEOPATHICS
     Indication: WEIGHT DECREASED
     Dosage: TAKEN UNDER THE TONGUE
     Dates: start: 20160529, end: 20160601

REACTIONS (4)
  - Vomiting [None]
  - Dizziness [None]
  - Migraine [None]
  - Syncope [None]

NARRATIVE: CASE EVENT DATE: 20160601
